FAERS Safety Report 19552721 (Version 1)
Quarter: 2021Q3

REPORT INFORMATION
  Report Type: Spontaneous
  Country: US (occurrence: US)
  Receive Date: 20210715
  Receipt Date: 20210715
  Transmission Date: 20211014
  Serious: Yes (Life-Threatening)
  Sender: FDA-Public Use
  Company Number: US-EMCURE PHARMACEUTICALS LTD-2021-EPL-002315

PATIENT
  Age: 73 Year
  Sex: Female

DRUGS (2)
  1. DEXAMETHASONE. [Suspect]
     Active Substance: DEXAMETHASONE
     Indication: COVID-19
     Dosage: 10?DAY COURSE
  2. AZITHROMYCIN ANHYDROUS. [Concomitant]
     Active Substance: AZITHROMYCIN ANHYDROUS
     Indication: COVID-19
     Dosage: 5 DAY TREATMENT

REACTIONS (2)
  - Off label use [Unknown]
  - Cryptococcal meningoencephalitis [Recovered/Resolved]
